FAERS Safety Report 9470954 (Version 1)
Quarter: 2013Q3

REPORT INFORMATION
  Report Type: Spontaneous
  Country: DE (occurrence: DE)
  Receive Date: 20130822
  Receipt Date: 20130822
  Transmission Date: 20140515
  Serious: Yes (Life-Threatening, Hospitalization)
  Sender: FDA-Public Use
  Company Number: DE-ELI_LILLY_AND_COMPANY-DE201308005143

PATIENT
  Age: 0 Day
  Sex: 0

DRUGS (2)
  1. CYMBALTA [Suspect]
     Indication: DEPRESSION
     Dosage: 30 MG, QD
     Route: 064
     Dates: start: 20070426
  2. CYMBALTA [Suspect]
     Dosage: 60 MG, QD
     Route: 064
     Dates: end: 20080208

REACTIONS (10)
  - Neonatal respiratory distress syndrome [Recovered/Resolved]
  - Neonatal aspiration [Recovered/Resolved]
  - Bradycardia neonatal [Recovered/Resolved]
  - Feeding disorder neonatal [Recovered/Resolved]
  - Anaemia neonatal [Recovered/Resolved]
  - Temperature regulation disorder [Recovered/Resolved]
  - Apnoea neonatal [Recovered/Resolved]
  - Hypotonia neonatal [Recovered/Resolved]
  - Convulsion neonatal [Recovered/Resolved]
  - Foetal exposure during pregnancy [Recovered/Resolved]
